FAERS Safety Report 5465801-X (Version None)
Quarter: 2007Q3

REPORT INFORMATION
  Report Type: 
  Country: None (occurrence: None)
  Receive Date: 20070924
  Receipt Date: 20070918
  Transmission Date: 20080115
  Serious: Yes (Death, Life-Threatening)
  Sender: FDA-Public Use
  Company Number: JP-BRISTOL-MYERS SQUIBB COMPANY-13897525

PATIENT
  Age: 60 Year
  Sex: Male

DRUGS (10)
  1. ARIPIPRAZOLE [Suspect]
     Indication: SCHIZOPHRENIA
     Dosage: 27JUN07-2JUL07;12MG,6DAYS.03-JUL-11JUL 24MG/DAY.12JUL-7AUG:30MG, 3WEEK 6DAYS
     Route: 048
     Dates: start: 20070627, end: 20070807
  2. LEVOMEPROMAZINE MALEATE [Suspect]
     Indication: SCHIZOPHRENIA
     Dosage: 50 MG 4 WEEKS 1DAY. 31JUL07-7AUG07;150 MG, 1WEEK 1DAY
     Route: 048
     Dates: start: 20070702, end: 20070807
  3. BIPERIDEN HYDROCHLORIDE TAB [Concomitant]
     Indication: PROPHYLAXIS
     Route: 048
     Dates: end: 20070807
  4. BIPERIDEN LACTATE [Concomitant]
     Indication: PROPHYLAXIS
     Route: 030
     Dates: start: 20070706, end: 20070722
  5. QUAZEPAM [Concomitant]
     Indication: SCHIZOPHRENIA
     Route: 048
     Dates: start: 20070602, end: 20070704
  6. HALOPERIDOL [Concomitant]
     Indication: SCHIZOPHRENIA
     Route: 030
     Dates: start: 20070706, end: 20070722
  7. CEFOTIAM HCL [Concomitant]
     Dosage: 06-AUG-2007 TO 8AUG. DOSE 2G.
     Route: 042
     Dates: start: 20070705, end: 20070711
  8. RINGERS SOLUTION, LACTATED [Concomitant]
     Route: 042
     Dates: start: 20070726, end: 20070726
  9. MAINTENANCE MEDIUM 5 [Concomitant]
     Route: 042
     Dates: start: 20070726, end: 20070727
  10. FLUNITRAZEPAM [Concomitant]
     Indication: SCHIZOPHRENIA
     Route: 048
     Dates: end: 20070807

REACTIONS (19)
  - ALTERED STATE OF CONSCIOUSNESS [None]
  - ANXIETY [None]
  - CONDITION AGGRAVATED [None]
  - DRUG INEFFECTIVE [None]
  - DYSPHAGIA [None]
  - DYSURIA [None]
  - ELECTROCARDIOGRAM QT PROLONGED [None]
  - GENERAL PHYSICAL HEALTH DETERIORATION [None]
  - HEPATIC FAILURE [None]
  - HYPOGLYCAEMIA [None]
  - HYPOTHERMIA [None]
  - INSOMNIA [None]
  - IRRITABILITY [None]
  - LUNG INFILTRATION [None]
  - NEUROLEPTIC MALIGNANT SYNDROME [None]
  - PNEUMONIA [None]
  - PNEUMONIA ASPIRATION [None]
  - PSYCHOTIC DISORDER [None]
  - RESTLESSNESS [None]
